FAERS Safety Report 5002896-1 (Version None)
Quarter: 2006Q2

REPORT INFORMATION
  Report Type: 
  Country: None (occurrence: None)
  Receive Date: 20060516
  Receipt Date: 20060512
  Transmission Date: 20061013
  Serious: Yes (Other)
  Sender: FDA-Public Use
  Company Number: 2006PK01020

PATIENT
  Age: 43 Year
  Sex: Male

DRUGS (3)
  1. SEROQUEL [Suspect]
     Route: 048
     Dates: start: 20050107, end: 20050121
  2. SEROQUEL [Interacting]
     Route: 048
     Dates: start: 20050121, end: 20050127
  3. SOLIAN [Interacting]
     Dates: start: 20020101

REACTIONS (2)
  - DRUG INTERACTION [None]
  - GRAND MAL CONVULSION [None]
